FAERS Safety Report 21387107 (Version 1)
Quarter: 2022Q3

REPORT INFORMATION
  Report Type: Spontaneous
  Country: US (occurrence: US)
  Receive Date: 20220928
  Receipt Date: 20220928
  Transmission Date: 20221026
  Serious: Yes (Hospitalization)
  Sender: FDA-Public Use
  Company Number: US-SA-SAC20220927001375

PATIENT
  Age: 54 Year
  Sex: Male

DRUGS (17)
  1. DUPIXENT [Suspect]
     Active Substance: DUPILUMAB
     Indication: Asthma
     Dosage: DOSE: 2ML UNDER THE SKIN FREQUENCY: EVERY 14 DAYS
     Route: 065
     Dates: start: 202010
  2. PRED FORTE [Concomitant]
     Active Substance: PREDNISOLONE ACETATE
  3. VITAMIN D3 [Concomitant]
     Active Substance: CHOLECALCIFEROL
  4. FLUOXETINE HYDROCHLORIDE [Concomitant]
     Active Substance: FLUOXETINE HYDROCHLORIDE
  5. HUMULIN R [Concomitant]
     Active Substance: INSULIN HUMAN
  6. HUMULIN N [Concomitant]
     Active Substance: INSULIN HUMAN
  7. HUMALOG [Concomitant]
     Active Substance: INSULIN LISPRO
  8. LORATADINE [Concomitant]
     Active Substance: LORATADINE
  9. PANTOPRAZOLE SODIUM [Concomitant]
     Active Substance: PANTOPRAZOLE SODIUM
  10. TRULICITY [Concomitant]
     Active Substance: DULAGLUTIDE
  11. ATORVASTATIN CALCIUM [Concomitant]
     Active Substance: ATORVASTATIN CALCIUM
  12. AMLODIPINE BESYLATE [Concomitant]
     Active Substance: AMLODIPINE BESYLATE
  13. ALBUTEROL SULFATE [Concomitant]
     Active Substance: ALBUTEROL SULFATE
  14. ASPIRIN [Concomitant]
     Active Substance: ASPIRIN
  15. METFORMIN HYDROCHLORIDE [Concomitant]
     Active Substance: METFORMIN HYDROCHLORIDE
  16. LISINOPRIL [Concomitant]
     Active Substance: LISINOPRIL
  17. ALBUTEROL SULFATE [Concomitant]
     Active Substance: ALBUTEROL SULFATE

REACTIONS (1)
  - COVID-19 [Unknown]

NARRATIVE: CASE EVENT DATE: 20220921
